FAERS Safety Report 5946138-9 (Version None)
Quarter: 2008Q4

REPORT INFORMATION
  Report Type: 
  Country: None (occurrence: None)
  Receive Date: 20081110
  Receipt Date: 20081102
  Transmission Date: 20090506
  Serious: Yes (Hospitalization)
  Sender: FDA-Public Use
  Company Number: US-AMGEN-QUU316769

PATIENT
  Sex: Female

DRUGS (3)
  1. ENBREL [Suspect]
     Indication: RHEUMATOID ARTHRITIS
     Route: 058
     Dates: start: 20031101
  2. METHOTREXATE [Concomitant]
  3. PREDNISONE TAB [Concomitant]

REACTIONS (2)
  - PREMATURE LABOUR [None]
  - RHEUMATOID ARTHRITIS [None]
